FAERS Safety Report 16165678 (Version 1)
Quarter: 2019Q2

REPORT INFORMATION
  Report Type: Spontaneous
  Country: US (occurrence: US)
  Receive Date: 20190405
  Receipt Date: 20190405
  Transmission Date: 20190711
  Serious: Yes (Other)
  Sender: FDA-Public Use
  Company Number: PHHY2019US078518

PATIENT
  Age: 20 Year
  Sex: Male

DRUGS (5)
  1. PROPOFOL. [Concomitant]
     Active Substance: PROPOFOL
     Indication: SEDATION
     Route: 065
  2. LORAZEPAM. [Suspect]
     Active Substance: LORAZEPAM
     Indication: PAIN IN EXTREMITY
     Dosage: 1 MG, UNK
     Route: 065
  3. HYDROMORPHONE [Suspect]
     Active Substance: HYDROMORPHONE
     Indication: PAIN IN EXTREMITY
     Dosage: 26 MG, UNK
     Route: 042
  4. FENTANYL. [Concomitant]
     Active Substance: FENTANYL
     Indication: PAIN IN EXTREMITY
     Route: 065
  5. MORPHINE [Suspect]
     Active Substance: MORPHINE
     Indication: PAIN IN EXTREMITY
     Dosage: 30 MG, UNK
     Route: 065

REACTIONS (4)
  - Obstructive airways disorder [Recovered/Resolved]
  - Coma [Recovered/Resolved]
  - Overdose [Unknown]
  - Product use in unapproved indication [Unknown]
